FAERS Safety Report 24304587 (Version 1)
Quarter: 2024Q3

REPORT INFORMATION
  Report Type: Other
  Country: US (occurrence: US)
  Receive Date: 20240910
  Receipt Date: 20240910
  Transmission Date: 20241016
  Serious: No
  Sender: SIGMA TAU
  Company Number: US-LEADIANT BIOSCIENCES, INC.-2023STPI000361

PATIENT
  Sex: Female

DRUGS (2)
  1. MATULANE [Suspect]
     Active Substance: PROCARBAZINE HYDROCHLORIDE
     Indication: Brain neoplasm malignant
     Dosage: 150 MILLIGRAM ON DAYS 8 TO 21 OF 42 DAY CYCLE
     Route: 048
     Dates: start: 20230707
  2. GLEOSTINE [Suspect]
     Active Substance: LOMUSTINE
     Dosage: 180 MILLIGRAM

REACTIONS (6)
  - Asthenia [Unknown]
  - Myalgia [Unknown]
  - Anaemia [Unknown]
  - Melaena [Unknown]
  - Nausea [Unknown]
  - Seizure [Unknown]
